FAERS Safety Report 5284798-9 (Version None)
Quarter: 2007Q2

REPORT INFORMATION
  Report Type: 
  Country: None (occurrence: None)
  Receive Date: 20070403
  Receipt Date: 20070330
  Transmission Date: 20071010
  Serious: Yes (Other)
  Sender: FDA-Public Use
  Company Number: DE-BRISTOL-MYERS SQUIBB COMPANY-13727094

PATIENT
  Age: 18 Year
  Sex: Female
  Weight: 56 kg

DRUGS (1)
  1. LUMINITY [Suspect]
     Indication: ULTRASOUND SCAN
     Route: 042
     Dates: start: 20070322

REACTIONS (1)
  - ANAPHYLACTOID REACTION [None]
